FAERS Safety Report 25775410 (Version 1)
Quarter: 2025Q3

REPORT INFORMATION
  Report Type: Spontaneous
  Country: EU (occurrence: EU)
  Receive Date: 20250909
  Receipt Date: 20250909
  Transmission Date: 20251021
  Serious: Yes (Life-Threatening, Hospitalization, Other)
  Sender: VIIV
  Company Number: None

PATIENT
  Age: 70 Year
  Sex: Male

DRUGS (4)
  1. ZIDOVUDINE [Interacting]
     Active Substance: ZIDOVUDINE
     Indication: Acquired immunodeficiency syndrome
     Dosage: 500 MG, QD
  2. EPIVIR [Interacting]
     Active Substance: LAMIVUDINE
     Indication: Acquired immunodeficiency syndrome
     Dosage: 300 MG, QD
  3. INVIRASE [Interacting]
     Active Substance: SAQUINAVIR MESYLATE
     Indication: Acquired immunodeficiency syndrome
     Dosage: 4.5 G, QD (TOOK THREE TABLETS/ 8 HOURS OF SAQUINAVIR 500 MG FOR THREE DAYS INSTEAD OF SAQUINAVIR 200 MG)
  4. INVIRASE [Concomitant]
     Active Substance: SAQUINAVIR MESYLATE
     Indication: Acquired immunodeficiency syndrome
     Dosage: 1.8 G, QD

REACTIONS (3)
  - Atrial fibrillation [Recovered/Resolved]
  - Overdose [Unknown]
  - Drug interaction [Unknown]

NARRATIVE: CASE EVENT DATE: 20060110
